FAERS Safety Report 12541927 (Version 2)
Quarter: 2016Q3

REPORT INFORMATION
  Report Type: Spontaneous
  Country: US (occurrence: US)
  Receive Date: 20160708
  Receipt Date: 20160719
  Transmission Date: 20161109
  Serious: No
  Sender: FDA-Public Use
  Company Number: US-ASTRAZENECA-2016SE61900

PATIENT
  Sex: Female
  Weight: 128.8 kg

DRUGS (13)
  1. ATENOLOL. [Suspect]
     Active Substance: ATENOLOL
     Indication: BLOOD PRESSURE ABNORMAL
     Route: 048
  2. EPIPEN [Concomitant]
     Active Substance: EPINEPHRINE
     Indication: HYPERSENSITIVITY
  3. MONTELUKAST [Concomitant]
     Active Substance: MONTELUKAST SODIUM
     Indication: ASTHMA
     Dosage: 10 MG AT NIGHT
     Route: 048
  4. NAPROXEN. [Concomitant]
     Active Substance: NAPROXEN
     Indication: BACK PAIN
     Dosage: 500.0MG UNKNOWN
     Route: 048
  5. TRAMADOL. [Concomitant]
     Active Substance: TRAMADOL
     Indication: BACK PAIN
     Dosage: 50.0MG UNKNOWN
     Route: 048
  6. SMOOTHLAX [Concomitant]
     Indication: CONSTIPATION
     Route: 048
  7. TOPIRAMATE. [Concomitant]
     Active Substance: TOPIRAMATE
     Indication: BIPOLAR DISORDER
     Dosage: 100.0MG UNKNOWN
     Route: 048
  8. SYMBICORT [Suspect]
     Active Substance: BUDESONIDE\FORMOTEROL FUMARATE DIHYDRATE
     Indication: ASTHMA
     Dosage: 160 4.5, 2 PUFFS TWICE A DAY
     Route: 055
     Dates: start: 20160401
  9. PHENTERMINE HCL [Concomitant]
     Active Substance: PHENTERMINE HYDROCHLORIDE
     Indication: INADEQUATE DIET
     Dosage: DAILY
     Route: 048
  10. APRAZOLAM [Concomitant]
     Indication: ANXIETY
     Route: 048
  11. VITAMIN D [Concomitant]
     Active Substance: CHOLECALCIFEROL
     Indication: VITAMIN D DEFICIENCY
     Dosage: 1000 DAILY
     Route: 048
  12. ESCITALOPRAM [Concomitant]
     Active Substance: ESCITALOPRAM OXALATE
     Indication: BIPOLAR DISORDER
     Route: 048
  13. KETOCONAZOLE. [Concomitant]
     Active Substance: KETOCONAZOLE
     Indication: ABDOMINAL DISCOMFORT
     Dosage: 60 G
     Route: 061

REACTIONS (11)
  - Wheezing [Unknown]
  - Faeces hard [Unknown]
  - Arthropathy [Unknown]
  - Dyspnoea [Unknown]
  - Product quality issue [Unknown]
  - Weight increased [Unknown]
  - Visual acuity reduced [Unknown]
  - Drug dose omission [Unknown]
  - Infection [Unknown]
  - Body height decreased [Unknown]
  - Feeling abnormal [Unknown]
